FAERS Safety Report 7938024-X (Version None)
Quarter: 2011Q4

REPORT INFORMATION
  Report Type: 
  Country: None (occurrence: None)
  Receive Date: 20111123
  Receipt Date: 20111111
  Transmission Date: 20120403
  Serious: No
  Sender: FDA-Public Use
  Company Number: US-BAYER-2011-111684

PATIENT
  Age: 78 Year
  Sex: Male

DRUGS (14)
  1. B6-VITAMIIN NS [Concomitant]
  2. NEURONTIN [Concomitant]
  3. ATIVAN [Concomitant]
  4. ASPIRIN [Concomitant]
  5. TRAMADOL HCL [Concomitant]
  6. CALTRATE [CALCIUM CARBONATE] [Concomitant]
  7. MULTI-VITAMINS [Concomitant]
  8. ASCORBIC ACID [Concomitant]
  9. WELLBUTRIN [Concomitant]
  10. LEVITRA [Suspect]
     Indication: ERECTILE DYSFUNCTION
     Dosage: HALF TABLET
     Route: 048
  11. B12-VITAMIIN [Concomitant]
  12. AMLODIPINE [Concomitant]
  13. PROZAC [Concomitant]
  14. POTASSIUM [Concomitant]

REACTIONS (2)
  - DIZZINESS [None]
  - FLUSHING [None]
